FAERS Safety Report 24272430 (Version 2)
Quarter: 2024Q3

REPORT INFORMATION
  Report Type: Report from Study
  Country: AR (occurrence: AR)
  Receive Date: 20240902
  Receipt Date: 20240916
  Transmission Date: 20241017
  Serious: Yes (Death, Hospitalization)
  Sender: PUMA
  Company Number: AR-OEPI8P-1402

PATIENT

DRUGS (2)
  1. NERLYNX [Suspect]
     Active Substance: NERATINIB
     Indication: Breast cancer metastatic
     Dosage: 240 MG, DAILY
     Route: 048
     Dates: start: 202310
  2. CAPECITABINE [Concomitant]
     Active Substance: CAPECITABINE
     Indication: Adjuvant therapy

REACTIONS (4)
  - Death [Fatal]
  - Product use issue [Unknown]
  - Spinal fracture [Unknown]
  - Fall [Unknown]

NARRATIVE: CASE EVENT DATE: 20240101
